FAERS Safety Report 21625743 (Version 2)
Quarter: 2022Q4

REPORT INFORMATION
  Report Type: Spontaneous
  Country: US (occurrence: US)
  Receive Date: 20221122
  Receipt Date: 20221213
  Transmission Date: 20230113
  Serious: Yes (Death, Hospitalization, Other)
  Sender: FDA-Public Use
  Company Number: US-009507513-2211USA006244

PATIENT
  Age: 85 Year
  Sex: Female
  Weight: 50.48 kg

DRUGS (16)
  1. VERQUVO [Suspect]
     Active Substance: VERICIGUAT
     Dosage: 5 MG
     Route: 048
     Dates: start: 20220609
  2. VERQUVO [Suspect]
     Active Substance: VERICIGUAT
     Dosage: 10 MG
     Route: 048
  3. BUMEX [Concomitant]
     Active Substance: BUMETANIDE
  4. DEXAMETHASONE [Concomitant]
     Active Substance: DEXAMETHASONE
  5. METHIMAZOLE [Concomitant]
     Active Substance: METHIMAZOLE
  6. METOLAZONE [Concomitant]
     Active Substance: METOLAZONE
  7. MUPIROCIN [Concomitant]
     Active Substance: MUPIROCIN
  8. SPIRONOLACTONE [Concomitant]
     Active Substance: SPIRONOLACTONE
  9. METOPROLOL [Concomitant]
     Active Substance: METOPROLOL
  10. XARELTO [Concomitant]
     Active Substance: RIVAROXABAN
  11. AMIODARONE [Concomitant]
     Active Substance: AMIODARONE
  12. VERAPAMIL [Concomitant]
     Active Substance: VERAPAMIL HYDROCHLORIDE
  13. SERTRALINE [Concomitant]
     Active Substance: SERTRALINE HYDROCHLORIDE
  14. PANTOPRAZOLE [Concomitant]
     Active Substance: PANTOPRAZOLE
  15. LORAZEPAM [Concomitant]
     Active Substance: LORAZEPAM
  16. LEVALBUTEROL HYDROCHLORIDE [Concomitant]
     Active Substance: LEVALBUTEROL HYDROCHLORIDE

REACTIONS (2)
  - Death [Fatal]
  - Atrial fibrillation [Unknown]

NARRATIVE: CASE EVENT DATE: 20221101
